FAERS Safety Report 16042329 (Version 1)
Quarter: 2019Q1

REPORT INFORMATION
  Report Type: Spontaneous
  Country: US (occurrence: US)
  Receive Date: 20190306
  Receipt Date: 20190306
  Transmission Date: 20190418
  Serious: No
  Sender: FDA-Public Use
  Company Number: US-AKORN PHARMACEUTICALS-2018AKN00834

PATIENT
  Age: 19 Year
  Sex: Male
  Weight: 74.83 kg

DRUGS (3)
  1. FINASTERIDE. [Concomitant]
     Active Substance: FINASTERIDE
  2. PROZAC [Concomitant]
     Active Substance: FLUOXETINE HYDROCHLORIDE
  3. MYORISAN [Suspect]
     Active Substance: ISOTRETINOIN
     Indication: ACNE CYSTIC
     Dosage: 40 MG, 1X/DAY
     Route: 048
     Dates: start: 20180525, end: 20180607

REACTIONS (8)
  - Headache [Recovered/Resolved]
  - Inner ear inflammation [Not Recovered/Not Resolved]
  - Arthralgia [Recovered/Resolved]
  - Lip dry [Recovered/Resolved]
  - Off label use [Recovered/Resolved]
  - Stomatitis [Recovered/Resolved]
  - Tinnitus [Not Recovered/Not Resolved]
  - Back pain [Recovered/Resolved]

NARRATIVE: CASE EVENT DATE: 2018
